FAERS Safety Report 22295143 (Version 1)
Quarter: 2023Q2

REPORT INFORMATION
  Report Type: Spontaneous
  Country: GB (occurrence: GB)
  Receive Date: 20230508
  Receipt Date: 20230508
  Transmission Date: 20230721
  Serious: Yes (Other)
  Sender: FDA-Public Use
  Company Number: None

PATIENT
  Age: 74 Year
  Sex: Female
  Weight: 84 kg

DRUGS (14)
  1. ALENDRONATE SODIUM [Suspect]
     Active Substance: ALENDRONATE SODIUM
     Dosage: 70 MILLIGRAM, QW, SHOULD BE SWALLOWED.
     Dates: start: 20230322
  2. SIMVASTATIN [Concomitant]
     Active Substance: SIMVASTATIN
     Dosage: 1 DOSAGE FORM, QD, AT NIGHT
     Dates: start: 20221123
  3. BISOPROLOL [Concomitant]
     Active Substance: BISOPROLOL
     Dosage: 1 DOSAGE FORM, QD, MORNING
     Dates: start: 20221123
  4. BRICANYL [Concomitant]
     Active Substance: TERBUTALINE SULFATE
     Dosage: 1 DOSAGE FORM, PRN (AS NECESSARY), UP TO FOUR TIMES DAILY
     Route: 055
     Dates: start: 20221123
  5. CODEINE PHOSPHATE [Concomitant]
     Active Substance: CODEINE PHOSPHATE
     Dosage: 1 DOSAGE FORM, UP TO 4 TIMES/DAY
     Dates: start: 20230209, end: 20230309
  6. DIGOXIN [Concomitant]
     Active Substance: DIGOXIN
     Dosage: 1 DOSAGE FORM, QD, MORNING
     Dates: start: 20221123
  7. DUORESP SPIROMAX [BUDESONIDE;FORMOTEROL FUMARATE DIHYDRATE] [Concomitant]
     Dosage: 2 DOSAGE FORM, BID, PUFFS
     Dates: start: 20221123
  8. FLUCLOXACILLIN [Concomitant]
     Active Substance: FLUCLOXACILLIN
     Dosage: 1 DOSAGE FORM, QID
     Dates: start: 20230419
  9. FUROSEMIDE [Concomitant]
     Active Substance: FUROSEMIDE
     Dosage: 1 DOSAGE FORM, QD, MORNING
     Dates: start: 20221123
  10. GLICLAZIDE [Concomitant]
     Active Substance: GLICLAZIDE
     Dosage: 3 DOSAGE FORM, BID, TAKE ONE  IN MORNING AND 2 IN EVENING BEFORE FOOD
     Dates: start: 20221221
  11. IBUPROFEN [Concomitant]
     Active Substance: IBUPROFEN
     Dosage: APPLY AS DIRECTED TO THE AFFECTED AREAS THREE T...
     Dates: start: 20230310, end: 20230320
  12. METFORMIN [Concomitant]
     Active Substance: METFORMIN HYDROCHLORIDE
     Dosage: 1 DOSAGE FORM, BID, AFTER FOOD
     Dates: start: 20221221
  13. RAMIPRIL [Concomitant]
     Active Substance: RAMIPRIL
     Dosage: 1 DOSAGE FORM, QD, MORNING
     Dates: start: 20221123
  14. WARFARIN SODIUM [Concomitant]
     Active Substance: WARFARIN SODIUM
     Dosage: TAKE AS PRESCRIBED IN ANTICOAGULANT TREATMENT BOOK
     Dates: start: 20230117

REACTIONS (4)
  - Restlessness [Recovering/Resolving]
  - Arthralgia [Recovering/Resolving]
  - Pain in extremity [Recovering/Resolving]
  - Musculoskeletal stiffness [Unknown]
